FAERS Safety Report 5466084-7 (Version None)
Quarter: 2007Q3

REPORT INFORMATION
  Report Type: 
  Country: None (occurrence: None)
  Receive Date: 20070919
  Receipt Date: 20070907
  Transmission Date: 20080115
  Serious: Yes (Other)
  Sender: FDA-Public Use
  Company Number: 2007-03041

PATIENT
  Age: 69 Year
  Sex: Female
  Weight: 37 kg

DRUGS (2)
  1. VELCADE [Suspect]
     Indication: MULTIPLE MYELOMA
     Dosage: 1.10 MG; INTRAVENOUS
     Route: 042
     Dates: start: 20070814, end: 20070824
  2. DEXAMETHASONE 0.5MG TAB [Concomitant]

REACTIONS (1)
  - HYPERTENSION [None]
